FAERS Safety Report 14963505 (Version 1)
Quarter: 2018Q2

REPORT INFORMATION
  Report Type: Spontaneous
  Country: CN (occurrence: CN)
  Receive Date: 20180601
  Receipt Date: 20180601
  Transmission Date: 20180711
  Serious: Yes (Other)
  Sender: FDA-Public Use
  Company Number: CN-PFIZER INC-2018222797

PATIENT
  Age: 45 Year
  Sex: Male
  Weight: 52 kg

DRUGS (5)
  1. LI KE WEI [Concomitant]
     Indication: CYTOMEGALOVIRUS INFECTION
     Dosage: 0.25 G, 2X/DAY
     Route: 041
     Dates: start: 20180408, end: 20180423
  2. VORICONAZOLE. [Suspect]
     Active Substance: VORICONAZOLE
     Indication: PNEUMONIA FUNGAL
     Dosage: 0.2 G, 2X/DAY
     Route: 041
     Dates: start: 20180327, end: 20180413
  3. IMIPENEM /CILASTATIN SODIUM [Concomitant]
     Indication: LUNG INFECTION
     Dosage: 1.5 G, 4X/DAY
     Route: 041
     Dates: start: 20180327, end: 20180425
  4. ZYVOX [Suspect]
     Active Substance: LINEZOLID
     Indication: PNEUMONIA
     Dosage: 600 MG, 2X/DAY
     Dates: start: 20180411, end: 20180413
  5. DEXAMETHASONE SODIUM PHOSPHATE. [Concomitant]
     Active Substance: DEXAMETHASONE SODIUM PHOSPHATE
     Indication: IMMUNOMODULATORY THERAPY
     Dosage: 5 MG, 1X/DAY
     Route: 042
     Dates: start: 20180327, end: 20180410

REACTIONS (8)
  - Somnolence [Recovering/Resolving]
  - Tachycardia [Recovering/Resolving]
  - Tremor [Recovering/Resolving]
  - Pyrexia [Recovering/Resolving]
  - Epilepsy [Unknown]
  - Delirium [Recovering/Resolving]
  - Muscle rigidity [Recovering/Resolving]
  - HIV-associated neurocognitive disorder [Unknown]

NARRATIVE: CASE EVENT DATE: 20180413
